FAERS Safety Report 8586487-1 (Version None)
Quarter: 2012Q3

REPORT INFORMATION
  Report Type: 
  Country: None (occurrence: None)
  Receive Date: 20120810
  Receipt Date: 20120730
  Transmission Date: 20120928
  Serious: Yes (Other)
  Sender: FDA-Public Use
  Company Number: US-ROCHE-765243

PATIENT

DRUGS (2)
  1. VORINOSTAT [Suspect]
     Indication: GLIOBLASTOMA MULTIFORME
  2. ISOTRETINOIN [Suspect]
     Indication: GLIOBLASTOMA MULTIFORME

REACTIONS (1)
  - PULMONARY EMBOLISM [None]
